FAERS Safety Report 7915105-8 (Version None)
Quarter: 2011Q4

REPORT INFORMATION
  Report Type: 
  Country: None (occurrence: None)
  Receive Date: 20111115
  Receipt Date: 20111102
  Transmission Date: 20120403
  Serious: Yes (Death)
  Sender: FDA-Public Use
  Company Number: CH-ROCHE-1010159

PATIENT
  Sex: Female

DRUGS (23)
  1. HALDOL [Concomitant]
     Route: 048
     Dates: start: 20110906, end: 20110909
  2. ACETAMINOPHEN [Concomitant]
     Route: 048
     Dates: start: 20110902, end: 20110908
  3. NOVALGIN [Concomitant]
     Route: 048
     Dates: start: 20110909, end: 20110909
  4. DIGOXIN [Suspect]
     Route: 048
     Dates: start: 20110909, end: 20110909
  5. QUETIAPINE FUMARATE [Suspect]
     Indication: PRODUCT USED FOR UNKNOWN INDICATION
     Dosage: 5 MG IN EVENING
     Route: 048
     Dates: end: 20110831
  6. SEROQUEL [Suspect]
     Route: 048
     Dates: end: 20110906
  7. POTASSIUM CHLORIDE [Suspect]
     Indication: HYPOKALAEMIA
     Route: 048
  8. DIGOXIN [Suspect]
     Indication: CARDIAC FAILURE
     Route: 048
     Dates: start: 20110810
  9. JANUVIA [Concomitant]
     Dates: start: 20110601, end: 20110909
  10. KONAKION [Concomitant]
     Dates: start: 20110901
  11. RAMIPRIL [Concomitant]
     Dates: end: 20110810
  12. TORSEMIDE [Suspect]
     Indication: CARDIAC FAILURE
     Route: 048
     Dates: start: 20110809
  13. PREDNISONE [Suspect]
     Route: 048
     Dates: start: 20110906, end: 20110909
  14. CONCOR [Concomitant]
     Dates: start: 20110909
  15. PREDNISONE [Suspect]
     Indication: CHRONIC OBSTRUCTIVE PULMONARY DISEASE
     Route: 048
  16. POTASSIUM BICARBONATE [Suspect]
     Indication: HYPOKALAEMIA
     Route: 048
     Dates: end: 20110809
  17. PARAGOL [Concomitant]
     Indication: CONSTIPATION
     Route: 048
     Dates: start: 20110829, end: 20110909
  18. MARCUMAR [Suspect]
     Indication: ATRIAL FIBRILLATION
     Route: 048
     Dates: start: 20110501
  19. SEROQUEL [Suspect]
     Indication: PRODUCT USED FOR UNKNOWN INDICATION
     Dosage: WITH INCREASING DOSE TO 35 MG DAILY
     Route: 048
     Dates: start: 20110831
  20. ACETAMINOPHEN [Concomitant]
     Route: 048
     Dates: start: 20110801
  21. LIDOCAINE HCL [Concomitant]
     Indication: ANAL HAEMORRHAGE
     Dates: start: 20110901, end: 20110909
  22. FUROSEMIDE [Concomitant]
     Indication: CARDIAC FAILURE
  23. DIGOXIN [Suspect]
     Route: 048
     Dates: start: 20110905

REACTIONS (6)
  - GASTROINTESTINAL HAEMORRHAGE [None]
  - THROMBOCYTOPENIA [None]
  - MELAENA [None]
  - HAEMORRHAGIC ANAEMIA [None]
  - GASTRIC ULCER [None]
  - INTERNATIONAL NORMALISED RATIO INCREASED [None]
